FAERS Safety Report 24525530 (Version 2)
Quarter: 2024Q4

REPORT INFORMATION
  Report Type: Spontaneous
  Country: US (occurrence: US)
  Receive Date: 20241020
  Receipt Date: 20241130
  Transmission Date: 20250115
  Serious: Yes (Hospitalization, Other)
  Sender: AUROBINDO
  Company Number: US-AUROBINDO-AUR-APL-2024-050518

PATIENT
  Age: 33 Year
  Sex: Female

DRUGS (2)
  1. NAPROXEN [Suspect]
     Active Substance: NAPROXEN
     Indication: Back pain
     Dosage: UNK
     Route: 065
  2. PREDNISONE [Suspect]
     Active Substance: PREDNISONE
     Indication: Cutaneous lupus erythematosus
     Dosage: 40 MILLIGRAM, DAILY
     Route: 065

REACTIONS (2)
  - Generalised bullous fixed drug eruption [Recovered/Resolved]
  - Drug ineffective [Unknown]
